FAERS Safety Report 9297593 (Version 1)
Quarter: 2013Q2

REPORT INFORMATION
  Report Type: Spontaneous
  Country: US (occurrence: None)
  Receive Date: 20130517
  Receipt Date: 20130517
  Transmission Date: 20140414
  Serious: No
  Sender: FDA-Public Use
  Company Number: None

PATIENT
  Sex: Female
  Weight: 83.2 kg

DRUGS (1)
  1. PRIVIGEN [Suspect]
     Indication: IMMUNODEFICIENCY COMMON VARIABLE
     Dosage: IV INFUSION
     Route: 042
     Dates: start: 20130514

REACTIONS (4)
  - Headache [None]
  - Nausea [None]
  - Vomiting [None]
  - Drug ineffective [None]
